FAERS Safety Report 18583036 (Version 2)
Quarter: 2022Q3

REPORT INFORMATION
  Report Type: Spontaneous
  Country: CA (occurrence: CA)
  Receive Date: 20201206
  Receipt Date: 20220802
  Transmission Date: 20221026
  Serious: Yes (Other)
  Sender: FDA-Public Use
  Company Number: CA-SA-2020SA342425

PATIENT
  Sex: Female

DRUGS (14)
  1. ARAVA [Suspect]
     Active Substance: LEFLUNOMIDE
     Indication: Product used for unknown indication
     Dosage: UNK
  2. AMLODIPINE [Suspect]
     Active Substance: AMLODIPINE BESYLATE
     Indication: Product used for unknown indication
     Dosage: UNK
  3. ATORVASTATIN [Suspect]
     Active Substance: ATORVASTATIN
     Indication: Product used for unknown indication
     Dosage: UNK
  4. CODEINE [Suspect]
     Active Substance: CODEINE
     Indication: Product used for unknown indication
     Dosage: UNK
  5. METHOTREXATE [Suspect]
     Active Substance: METHOTREXATE
     Indication: Product used for unknown indication
     Dosage: UNK
  6. METHOTREXATE [Suspect]
     Active Substance: METHOTREXATE
  7. SULFASALAZINE [Suspect]
     Active Substance: SULFASALAZINE
     Indication: Product used for unknown indication
     Dosage: 1500 MG, BID
  8. ETANERCEPT [Suspect]
     Active Substance: ETANERCEPT
     Indication: Product used for unknown indication
     Dosage: UNK
     Dates: end: 20200101
  9. PANTOPRAZOLE SODIUM [Concomitant]
     Active Substance: PANTOPRAZOLE SODIUM
     Indication: Product used for unknown indication
     Dosage: UNK
  10. PERINDOPRIL [Concomitant]
     Active Substance: PERINDOPRIL
     Indication: Product used for unknown indication
     Dosage: UNK
  11. PREMARIN [Concomitant]
     Active Substance: ESTROGENS, CONJUGATED
     Indication: Product used for unknown indication
     Dosage: UNK
  12. SERTRALINE [Concomitant]
     Active Substance: SERTRALINE HYDROCHLORIDE
     Indication: Product used for unknown indication
     Dosage: UNK
  13. ZOPICLONE [Concomitant]
     Active Substance: ZOPICLONE
     Indication: Product used for unknown indication
     Dosage: UNK
  14. PLAQUENIL [Concomitant]
     Active Substance: HYDROXYCHLOROQUINE SULFATE
     Indication: Product used for unknown indication
     Dosage: 300 MG, QD

REACTIONS (4)
  - Hypertension [Unknown]
  - Drug intolerance [Unknown]
  - Abdominal pain upper [Unknown]
  - Rheumatoid arthritis [Unknown]
